FAERS Safety Report 5142488-7 (Version None)
Quarter: 2006Q4

REPORT INFORMATION
  Report Type: 
  Country: None (occurrence: None)
  Receive Date: 20061027
  Receipt Date: 20061023
  Transmission Date: 20070319
  Serious: Yes (Death)
  Sender: FDA-Public Use
  Company Number: 163-20785-06040252

PATIENT
  Age: 68 Year
  Sex: Male

DRUGS (1)
  1. THALOMID [Suspect]
     Indication: GLIOBLASTOMA MULTIFORME
     Dosage: 200 MG - 300 MG, DAILY, ORAL
     Route: 048
     Dates: start: 20060301, end: 20060301

REACTIONS (4)
  - CONSTIPATION [None]
  - DYSAESTHESIA [None]
  - HYPOAESTHESIA [None]
  - PARAESTHESIA [None]
